FAERS Safety Report 8241534-1 (Version None)
Quarter: 2012Q1

REPORT INFORMATION
  Report Type: 
  Country: None (occurrence: None)
  Receive Date: 20120328
  Receipt Date: 20111017
  Transmission Date: 20120608
  Serious: Yes (Hospitalization)
  Sender: FDA-Public Use
  Company Number: US-COVIDIEN/TYCO HEALTHCARE/MALLINCKRODT-T201102258

PATIENT
  Sex: Female

DRUGS (2)
  1. METHADOSE [Suspect]
     Dosage: 90 MG, UNK
     Dates: start: 20110929
  2. METHADOSE [Suspect]
     Dosage: 30 MG, UNK
     Dates: start: 20110818

REACTIONS (2)
  - ARRHYTHMIA [None]
  - TORSADE DE POINTES [None]
